FAERS Safety Report 24451508 (Version 1)
Quarter: 2024Q4

REPORT INFORMATION
  Report Type: Spontaneous
  Country: CA (occurrence: CA)
  Receive Date: 20241017
  Receipt Date: 20241017
  Transmission Date: 20250114
  Serious: Yes (Death, Life-Threatening, Hospitalization, Disabling, Other)
  Sender: ORGANON
  Company Number: CA-ORGANON-O2410CAN001018

PATIENT
  Age: 44 Year
  Sex: Female

DRUGS (339)
  1. FOSAMAX [Suspect]
     Active Substance: ALENDRONATE SODIUM
     Indication: Rheumatoid arthritis
     Dosage: UNK
     Route: 048
  2. FOSAMAX [Suspect]
     Active Substance: ALENDRONATE SODIUM
     Dosage: UNK
     Route: 065
  3. FOSAMAX [Suspect]
     Active Substance: ALENDRONATE SODIUM
     Dosage: UNK
     Route: 065
  4. FOSAMAX [Suspect]
     Active Substance: ALENDRONATE SODIUM
     Dosage: 1.0 MILLIGRAM
     Route: 065
  5. FOSAMAX [Suspect]
     Active Substance: ALENDRONATE SODIUM
     Dosage: UNK
     Route: 048
  6. FOSAMAX [Suspect]
     Active Substance: ALENDRONATE SODIUM
     Dosage: 1.0 MILLIGRAM
     Route: 048
  7. FOSAMAX [Suspect]
     Active Substance: ALENDRONATE SODIUM
     Dosage: UNK
     Route: 065
  8. FOSAMAX [Suspect]
     Active Substance: ALENDRONATE SODIUM
     Dosage: UNK
     Route: 048
  9. FOSAMAX [Suspect]
     Active Substance: ALENDRONATE SODIUM
     Dosage: UNK
     Route: 065
  10. ACETAMINOPHEN [Suspect]
     Active Substance: ACETAMINOPHEN
     Indication: Rheumatoid arthritis
     Dosage: 10.0 MILLIGRAM
     Route: 065
  11. ACETAMINOPHEN [Suspect]
     Active Substance: ACETAMINOPHEN
     Dosage: UNK
     Route: 065
  12. ACETAMINOPHEN\OXYCODONE HYDROCHLORIDE [Suspect]
     Active Substance: ACETAMINOPHEN\OXYCODONE HYDROCHLORIDE
     Indication: Product used for unknown indication
     Dosage: UNK
     Route: 065
  13. ACTEMRA [Suspect]
     Active Substance: TOCILIZUMAB
     Dosage: 752.0 MILLIGRAM (NOT OTHERWISE SPECIFIED)
     Route: 042
  14. ACTEMRA [Suspect]
     Active Substance: TOCILIZUMAB
     Dosage: 752.8 MILLIGRAM
     Route: 065
  15. ACTEMRA [Suspect]
     Active Substance: TOCILIZUMAB
     Dosage: 3011.2 MILLIGRAM (NOT OTHERWISE SPECIFIED)
     Route: 042
  16. ACTEMRA [Suspect]
     Active Substance: TOCILIZUMAB
     Dosage: 752.8 MILLIGRAM (NOT OTHERWISE SPECIFIED)
     Route: 042
  17. ACTEMRA [Suspect]
     Active Substance: TOCILIZUMAB
     Dosage: 1.0 DOSAGE FORM (NOT OTHERWISE SPECIFIED)
     Route: 042
  18. ACTEMRA [Suspect]
     Active Substance: TOCILIZUMAB
     Dosage: 728.8 MILLIGRAM
     Route: 065
  19. ACTEMRA [Suspect]
     Active Substance: TOCILIZUMAB
     Dosage: 3011.2 MILLIGRAM (NOT OTHERWISE SPECIFIED)
     Route: 042
  20. ACTEMRA [Suspect]
     Active Substance: TOCILIZUMAB
     Dosage: 728.0 MILLIGRAM
     Route: 065
  21. ACTEMRA [Suspect]
     Active Substance: TOCILIZUMAB
     Dosage: 728.0 MILLIGRAM (NOT OTHERWISE SPECIFIED)
     Route: 042
  22. ACTEMRA [Suspect]
     Active Substance: TOCILIZUMAB
     Dosage: 752.8 MILLIGRAM (NOT OTHERWISE SPECIFIED)
     Route: 042
  23. ACTEMRA [Suspect]
     Active Substance: TOCILIZUMAB
     Dosage: 2912.0 MILLIGRAM (NOT OTHERWISE SPECIFIED)
     Route: 042
  24. ACTEMRA [Suspect]
     Active Substance: TOCILIZUMAB
     Dosage: UNK
     Route: 065
  25. ACTEMRA [Suspect]
     Active Substance: TOCILIZUMAB
     Dosage: UNK (NOT OTHERWISE SPECIFIED)
     Route: 042
  26. ACTEMRA [Suspect]
     Active Substance: TOCILIZUMAB
     Dosage: UNK
     Route: 058
  27. ACTEMRA [Suspect]
     Active Substance: TOCILIZUMAB
     Dosage: 2912.0 MILLIGRAM (NOT OTHERWISE SPECIFIED)
     Route: 042
  28. ADALIMUMAB [Suspect]
     Active Substance: ADALIMUMAB
     Indication: Psoriatic arthropathy
     Dosage: UNK
     Route: 058
  29. ADALIMUMAB [Suspect]
     Active Substance: ADALIMUMAB
     Dosage: UNK
     Route: 058
  30. ADALIMUMAB [Suspect]
     Active Substance: ADALIMUMAB
     Dosage: 40.0 MILLIGRAM
     Route: 058
  31. ADALIMUMAB [Suspect]
     Active Substance: ADALIMUMAB
     Indication: Psoriatic arthropathy
     Dosage: 40.0 MILLIGRAM
     Route: 048
  32. PREDNISONE [Suspect]
     Active Substance: PREDNISONE
     Indication: Rheumatoid arthritis
     Dosage: UNK
     Route: 048
  33. PREDNISONE [Suspect]
     Active Substance: PREDNISONE
     Dosage: 5.0 MILLIGRAM
     Route: 065
  34. PREDNISONE [Suspect]
     Active Substance: PREDNISONE
     Dosage: 1.0 MILLIGRAM
     Route: 065
  35. PREDNISONE [Suspect]
     Active Substance: PREDNISONE
     Dosage: 5.0 MILLIGRAM
     Route: 048
  36. APREMILAST [Suspect]
     Active Substance: APREMILAST
     Indication: Product used for unknown indication
     Dosage: 3.0 MILLIGRAM, 1 EVERY 0.5 DAYS
     Route: 048
  37. APREMILAST [Suspect]
     Active Substance: APREMILAST
     Dosage: 3.0 MILLIGRAM
     Route: 048
  38. APREMILAST [Suspect]
     Active Substance: APREMILAST
     Indication: Product used for unknown indication
     Dosage: UNK (NOT OTHERWISE SPECIFIED)
     Route: 042
  39. APREMILAST [Suspect]
     Active Substance: APREMILAST
     Indication: Product used for unknown indication
     Dosage: 3.0 MILLIGRAM
     Route: 065
  40. APREPITANT [Suspect]
     Active Substance: APREPITANT
     Indication: Product used for unknown indication
     Dosage: UNK (NOT OTHERWISE SPECIFIED)
     Route: 042
  41. ARAVA [Suspect]
     Active Substance: LEFLUNOMIDE
     Indication: Rheumatoid arthritis
     Dosage: 20.0 MILLIGRAM, 1 EVERY 1 DAYS (QD)
     Route: 048
  42. ARAVA [Suspect]
     Active Substance: LEFLUNOMIDE
     Dosage: 20.0 MILLIGRAM, 1 EVERY 1 DAYS (QD)
     Route: 048
  43. ARAVA [Suspect]
     Active Substance: LEFLUNOMIDE
     Dosage: UNK
     Route: 065
  44. ARAVA [Suspect]
     Active Substance: LEFLUNOMIDE
     Dosage: UNK
     Route: 048
  45. CELECOXIB [Suspect]
     Active Substance: CELECOXIB
     Indication: Product used for unknown indication
     Dosage: 1.0 DOSAGE FORM, 1 EVERY 1 DAYS (QD)
     Route: 065
  46. CELECOXIB [Suspect]
     Active Substance: CELECOXIB
     Dosage: 1.0 DOSAGE FORM, 1 EVERY 1 DAYS (QD)
     Route: 065
  47. CELECOXIB [Suspect]
     Active Substance: CELECOXIB
     Indication: Product used for unknown indication
     Dosage: UNK
     Route: 065
  48. CELECOXIB [Suspect]
     Active Substance: CELECOXIB
     Indication: Product used for unknown indication
     Dosage: 2.0 DOSAGE FORM, 1 EVERY 1 DAYS (QD)
     Route: 048
  49. CERTOLIZUMAB PEGOL [Suspect]
     Active Substance: CERTOLIZUMAB PEGOL
     Indication: Product used for unknown indication
     Dosage: UNK
     Route: 065
  50. CETIRIZINE HYDROCHLORIDE [Suspect]
     Active Substance: CETIRIZINE HYDROCHLORIDE
     Indication: Rheumatoid arthritis
     Dosage: 25.0 MILLIGRAM
     Route: 065
  51. CETIRIZINE HYDROCHLORIDE [Suspect]
     Active Substance: CETIRIZINE HYDROCHLORIDE
     Dosage: 10.0 MILLIGRAM
     Route: 048
  52. CETIRIZINE HYDROCHLORIDE [Suspect]
     Active Substance: CETIRIZINE HYDROCHLORIDE
     Dosage: 25.0 MILLIGRAM
     Route: 048
  53. CETIRIZINE HYDROCHLORIDE [Suspect]
     Active Substance: CETIRIZINE HYDROCHLORIDE
     Dosage: 10.0 MILLIGRAM, 1 EVERY 1 DAYS (QD)
     Route: 048
  54. CETIRIZINE HYDROCHLORIDE [Suspect]
     Active Substance: CETIRIZINE HYDROCHLORIDE
     Dosage: 10.0 MILLIGRAM, 1 EVERY 1 DAYS (QD)
     Route: 065
  55. CETIRIZINE HYDROCHLORIDE [Suspect]
     Active Substance: CETIRIZINE HYDROCHLORIDE
     Dosage: 10.0 MILLIGRAM, 1 EVERY 1 DAYS (QD)
     Route: 065
  56. CETIRIZINE HYDROCHLORIDE [Suspect]
     Active Substance: CETIRIZINE HYDROCHLORIDE
     Dosage: 10.0 MILLIGRAM, 1 EVERY 1 DAYS (QD)
     Route: 048
  57. CETIRIZINE HYDROCHLORIDE [Suspect]
     Active Substance: CETIRIZINE HYDROCHLORIDE
     Dosage: 25.0 MILLIGRAM
     Route: 065
  58. CETIRIZINE HYDROCHLORIDE [Suspect]
     Active Substance: CETIRIZINE HYDROCHLORIDE
     Dosage: 10.0 MILLIGRAM
     Route: 065
  59. CETIRIZINE HYDROCHLORIDE [Suspect]
     Active Substance: CETIRIZINE HYDROCHLORIDE
     Indication: Rheumatoid arthritis
     Dosage: UNK
     Route: 065
  60. CETIRIZINE HYDROCHLORIDE [Suspect]
     Active Substance: CETIRIZINE HYDROCHLORIDE
     Dosage: UNK
     Route: 065
  61. CETIRIZINE HYDROCHLORIDE [Suspect]
     Active Substance: CETIRIZINE HYDROCHLORIDE
     Dosage: UNK
     Route: 065
  62. CETIRIZINE HYDROCHLORIDE [Suspect]
     Active Substance: CETIRIZINE HYDROCHLORIDE
     Dosage: 10.0 MILLIGRAM, 1 EVERY 1 DAYS
     Route: 048
  63. CETIRIZINE HYDROCHLORIDE [Suspect]
     Active Substance: CETIRIZINE HYDROCHLORIDE
     Dosage: 10.0 MILLIGRAM, 1 EVERY 1 DAYS
     Route: 048
  64. CETIRIZINE HYDROCHLORIDE [Suspect]
     Active Substance: CETIRIZINE HYDROCHLORIDE
     Dosage: 25.0 MILLIGRAM
     Route: 048
  65. CHLORAPREP [Suspect]
     Active Substance: CHLORHEXIDINE GLUCONATE\ISOPROPYL ALCOHOL
     Indication: Product used for unknown indication
     Dosage: UNK (SOLUTION)
     Route: 061
  66. CHLORAPREP [Suspect]
     Active Substance: CHLORHEXIDINE GLUCONATE\ISOPROPYL ALCOHOL
     Indication: Product used for unknown indication
     Dosage: UNK
     Route: 065
  67. CHLORAPREP [Suspect]
     Active Substance: CHLORHEXIDINE GLUCONATE\ISOPROPYL ALCOHOL
     Indication: Product used for unknown indication
     Dosage: UNK
     Route: 061
  68. CHLORHEXIDINE [Suspect]
     Active Substance: CHLORHEXIDINE
     Indication: Product used for unknown indication
     Dosage: UNK
     Route: 048
  69. CHLORHEXIDINE [Suspect]
     Active Substance: CHLORHEXIDINE
     Dosage: UNK
     Route: 048
  70. CHLORHEXIDINE [Suspect]
     Active Substance: CHLORHEXIDINE
     Indication: Product used for unknown indication
     Dosage: UNK
     Route: 061
  71. CHLORHEXIDINE [Suspect]
     Active Substance: CHLORHEXIDINE
     Indication: Product used for unknown indication
     Dosage: UNK
     Route: 002
  72. CHLORHEXIDINE [Suspect]
     Active Substance: CHLORHEXIDINE
     Indication: Product used for unknown indication
     Dosage: UNK
     Route: 065
  73. CHLORHEXIDINE GLUCONATE [Suspect]
     Active Substance: CHLORHEXIDINE GLUCONATE
     Indication: Product used for unknown indication
     Dosage: UNK
     Route: 061
  74. CHLORHEXIDINE GLUCONATE [Suspect]
     Active Substance: CHLORHEXIDINE GLUCONATE
     Indication: Product used for unknown indication
     Dosage: UNK
     Route: 048
  75. CHLORHEXIDINE GLUCONATE [Suspect]
     Active Substance: CHLORHEXIDINE GLUCONATE
     Indication: Product used for unknown indication
     Dosage: UNK
     Route: 002
  76. CHLORHEXIDINE GLUCONATE\ISOPROPYL ALCOHOL [Suspect]
     Active Substance: CHLORHEXIDINE GLUCONATE\ISOPROPYL ALCOHOL
     Indication: Product used for unknown indication
     Dosage: UNK
     Route: 048
  77. CHLORHEXIDINE GLUCONATE\ISOPROPYL ALCOHOL [Suspect]
     Active Substance: CHLORHEXIDINE GLUCONATE\ISOPROPYL ALCOHOL
     Indication: Product used for unknown indication
     Dosage: UNK (NOT SPECIFIED)
     Route: 002
  78. CHLORHEXIDINE GLUCONATE\ISOPROPYL ALCOHOL [Suspect]
     Active Substance: CHLORHEXIDINE GLUCONATE\ISOPROPYL ALCOHOL
     Indication: Product used for unknown indication
     Dosage: UNK
     Route: 061
  79. CIMZIA [Suspect]
     Active Substance: CERTOLIZUMAB PEGOL
     Indication: Rheumatoid arthritis
     Dosage: 10.0 MILLIGRAM
     Route: 058
  80. CIMZIA [Suspect]
     Active Substance: CERTOLIZUMAB PEGOL
     Dosage: 200.0 MILLIGRAM
     Route: 058
  81. CIMZIA [Suspect]
     Active Substance: CERTOLIZUMAB PEGOL
     Dosage: 400.0 MILLIGRAM
     Route: 058
  82. CIMZIA [Suspect]
     Active Substance: CERTOLIZUMAB PEGOL
     Dosage: UNK
     Route: 065
  83. CIMZIA [Suspect]
     Active Substance: CERTOLIZUMAB PEGOL
     Dosage: 400.0 MILLIGRAM
     Route: 065
  84. CIMZIA [Suspect]
     Active Substance: CERTOLIZUMAB PEGOL
     Dosage: UNK
     Route: 065
  85. CIMZIA [Suspect]
     Active Substance: CERTOLIZUMAB PEGOL
     Dosage: UNK
     Route: 058
  86. CIMZIA [Suspect]
     Active Substance: CERTOLIZUMAB PEGOL
     Dosage: 1.0 DOSAGE FORM, 1 EVERY 1 DAYS (QD)
     Route: 058
  87. CIMZIA [Suspect]
     Active Substance: CERTOLIZUMAB PEGOL
     Dosage: UNK
     Route: 058
  88. CIMZIA [Suspect]
     Active Substance: CERTOLIZUMAB PEGOL
     Dosage: UNK
     Route: 065
  89. CORTISONE ACETATE [Suspect]
     Active Substance: CORTISONE ACETATE
     Indication: Rheumatoid arthritis
     Dosage: 25.0 MILLIGRAM
     Route: 065
  90. CORTISONE ACETATE [Suspect]
     Active Substance: CORTISONE ACETATE
     Dosage: 25.0 MILLIGRAM
     Route: 048
  91. CORTISONE ACETATE [Suspect]
     Active Substance: CORTISONE ACETATE
     Dosage: 25.0 MILLIGRAM
     Route: 048
  92. CORTISONE ACETATE [Suspect]
     Active Substance: CORTISONE ACETATE
     Dosage: 25.0 MILLIGRAM
     Route: 048
  93. CORTISONE ACETATE [Suspect]
     Active Substance: CORTISONE ACETATE
     Dosage: 25.0 MILLIGRAM
     Route: 048
  94. CORTISONE ACETATE [Suspect]
     Active Substance: CORTISONE ACETATE
     Dosage: 25.0 MILLIGRAM
     Route: 061
  95. CORTISONE ACETATE [Suspect]
     Active Substance: CORTISONE ACETATE
     Indication: Rheumatoid arthritis
     Dosage: UNK
     Route: 048
  96. CORTISONE ACETATE [Suspect]
     Active Substance: CORTISONE ACETATE
     Dosage: 25.0 MILLIGRAM
     Route: 065
  97. CORTISONE ACETATE [Suspect]
     Active Substance: CORTISONE ACETATE
     Dosage: UNK
     Route: 048
  98. CORTISONE ACETATE [Suspect]
     Active Substance: CORTISONE ACETATE
     Dosage: UNK
     Route: 065
  99. CORTISONE ACETATE [Suspect]
     Active Substance: CORTISONE ACETATE
     Dosage: 25.0 MILLIGRAM
     Route: 061
  100. CORTISONE ACETATE [Suspect]
     Active Substance: CORTISONE ACETATE
     Dosage: 25.0 MILLIGRAM, 1 EVERY 1 DAYS
     Route: 061
  101. CORTISONE ACETATE [Suspect]
     Active Substance: CORTISONE ACETATE
     Dosage: 25.0 MILLIGRAM
     Route: 065
  102. CORTISONE ACETATE [Suspect]
     Active Substance: CORTISONE ACETATE
     Dosage: 25.0 MILLIGRAM
     Route: 048
  103. CORTISONE ACETATE [Suspect]
     Active Substance: CORTISONE ACETATE
     Dosage: UNK
     Route: 003
  104. CORTISONE ACETATE [Suspect]
     Active Substance: CORTISONE ACETATE
     Dosage: UNK
     Route: 048
  105. CORTISONE ACETATE [Suspect]
     Active Substance: CORTISONE ACETATE
     Indication: Rheumatoid arthritis
     Dosage: UNK
     Route: 058
  106. CORTISONE ACETATE [Suspect]
     Active Substance: CORTISONE ACETATE
     Dosage: UNK
     Route: 003
  107. CORTISONE ACETATE [Suspect]
     Active Substance: CORTISONE ACETATE
     Dosage: 20.0 MILLIGRAM
     Route: 058
  108. CORTISONE ACETATE [Suspect]
     Active Substance: CORTISONE ACETATE
     Dosage: UNK
     Route: 058
  109. CORTISONE ACETATE [Suspect]
     Active Substance: CORTISONE ACETATE
     Dosage: UNK
     Route: 058
  110. CORTISONE ACETATE [Suspect]
     Active Substance: CORTISONE ACETATE
     Dosage: UNK
     Route: 003
  111. CORTISONE ACETATE [Suspect]
     Active Substance: CORTISONE ACETATE
     Dosage: UNK
     Route: 003
  112. CORTISONE ACETATE [Suspect]
     Active Substance: CORTISONE ACETATE
     Dosage: UNK
     Route: 003
  113. CORTISONE ACETATE [Suspect]
     Active Substance: CORTISONE ACETATE
     Indication: Rheumatoid arthritis
     Dosage: UNK
     Route: 048
  114. CORTISONE ACETATE [Suspect]
     Active Substance: CORTISONE ACETATE
     Dosage: UNK
     Route: 048
  115. CORTISONE ACETATE [Suspect]
     Active Substance: CORTISONE ACETATE
     Indication: Rheumatoid arthritis
     Dosage: UNK
     Route: 061
  116. CORTISONE ACETATE [Suspect]
     Active Substance: CORTISONE ACETATE
     Indication: Rheumatoid arthritis
     Dosage: UNK
     Route: 065
  117. COSENTYX [Suspect]
     Active Substance: SECUKINUMAB
     Indication: Rheumatoid arthritis
     Dosage: UNK
     Route: 065
  118. COSENTYX [Suspect]
     Active Substance: SECUKINUMAB
     Indication: Psoriatic arthropathy
  119. COSENTYX [Suspect]
     Active Substance: SECUKINUMAB
     Indication: Rheumatoid arthritis
     Dosage: UNK
     Route: 005
  120. COSENTYX [Suspect]
     Active Substance: SECUKINUMAB
     Indication: Psoriatic arthropathy
  121. DESOXIMETASONE [Suspect]
     Active Substance: DESOXIMETASONE
     Indication: Rheumatoid arthritis
     Dosage: 25.0 MILLIGRAM
     Route: 048
  122. DESOXIMETASONE [Suspect]
     Active Substance: DESOXIMETASONE
     Dosage: 25.0 MILLIGRAM
     Route: 048
  123. DESOXIMETASONE [Suspect]
     Active Substance: DESOXIMETASONE
     Dosage: UNK
     Route: 048
  124. DESOXIMETASONE [Suspect]
     Active Substance: DESOXIMETASONE
     Dosage: UNK
     Route: 048
  125. DESOXIMETASONE [Suspect]
     Active Substance: DESOXIMETASONE
     Dosage: UNK
     Route: 048
  126. DESOXIMETASONE [Suspect]
     Active Substance: DESOXIMETASONE
     Dosage: UNK
     Route: 061
  127. DESOXIMETASONE [Suspect]
     Active Substance: DESOXIMETASONE
     Dosage: UNK
     Route: 058
  128. DESOXIMETASONE [Suspect]
     Active Substance: DESOXIMETASONE
     Dosage: UNK
     Route: 058
  129. DESOXIMETASONE [Suspect]
     Active Substance: DESOXIMETASONE
     Dosage: 25.0 MILLIGRAM
     Route: 065
  130. DESOXIMETASONE [Suspect]
     Active Substance: DESOXIMETASONE
     Dosage: 25.0 MILLIGRAM
     Route: 065
  131. DESOXIMETASONE [Suspect]
     Active Substance: DESOXIMETASONE
     Dosage: 25.0 MILLIGRAM
     Route: 065
  132. DESOXIMETASONE [Suspect]
     Active Substance: DESOXIMETASONE
     Dosage: 25.0 MILLIGRAM
     Route: 061
  133. DESOXIMETASONE [Suspect]
     Active Substance: DESOXIMETASONE
     Dosage: 25.0 MILLIGRAM
     Route: 061
  134. DESOXIMETASONE [Suspect]
     Active Substance: DESOXIMETASONE
     Dosage: UNK
     Route: 065
  135. DESOXIMETASONE [Suspect]
     Active Substance: DESOXIMETASONE
     Dosage: UNK
     Route: 065
  136. DESOXIMETASONE [Suspect]
     Active Substance: DESOXIMETASONE
     Dosage: 25.0 MILLIGRAM, 1 EVERY 1 WEEKS (QW)
     Route: 048
  137. DESOXIMETASONE [Suspect]
     Active Substance: DESOXIMETASONE
     Dosage: 25.0 MILLIGRAM
     Route: 003
  138. DESOXIMETASONE [Suspect]
     Active Substance: DESOXIMETASONE
     Dosage: UNK, 1 EVERY 1 WEEKS (QW)
     Route: 065
  139. DESOXIMETASONE [Suspect]
     Active Substance: DESOXIMETASONE
     Dosage: UNK
     Route: 058
  140. DESOXIMETASONE [Suspect]
     Active Substance: DESOXIMETASONE
     Dosage: UNK
     Route: 042
  141. DESOXIMETASONE [Suspect]
     Active Substance: DESOXIMETASONE
     Dosage: 25.0 MILLIGRAM
     Route: 061
  142. DESOXIMETASONE [Suspect]
     Active Substance: DESOXIMETASONE
     Dosage: UNK
     Route: 048
  143. DESOXIMETASONE [Suspect]
     Active Substance: DESOXIMETASONE
     Dosage: UNK
     Route: 003
  144. DESOXIMETASONE [Suspect]
     Active Substance: DESOXIMETASONE
     Dosage: 25.0 MILLIGRAM
     Route: 065
  145. DESOXIMETASONE [Suspect]
     Active Substance: DESOXIMETASONE
     Dosage: UNK
     Route: 003
  146. DESOXIMETASONE [Suspect]
     Active Substance: DESOXIMETASONE
     Dosage: UNK
     Route: 048
  147. DESOXIMETASONE [Suspect]
     Active Substance: DESOXIMETASONE
     Indication: Rheumatoid arthritis
     Dosage: 25.0 MILLIGRAM
     Route: 003
  148. DICLOFENAC DIETHYLAMINE [Suspect]
     Active Substance: DICLOFENAC DIETHYLAMINE
     Indication: Product used for unknown indication
     Dosage: UNK
     Route: 065
  149. DICLOFENAC POTASSIUM [Suspect]
     Active Substance: DICLOFENAC POTASSIUM
     Indication: Product used for unknown indication
     Dosage: UNK
     Route: 065
  150. DICLOFENAC POTASSIUM [Suspect]
     Active Substance: DICLOFENAC POTASSIUM
     Dosage: 100.0 MILLIGRAM
     Route: 065
  151. DICLOFENAC POTASSIUM [Suspect]
     Active Substance: DICLOFENAC POTASSIUM
     Indication: Product used for unknown indication
     Dosage: UNK
     Route: 058
  152. DICLOFENAC POTASSIUM [Suspect]
     Active Substance: DICLOFENAC POTASSIUM
     Dosage: 50.0 MILLIGRAM, 1 EVERY 1 DAYS
     Route: 058
  153. DICLOFENAC POTASSIUM [Suspect]
     Active Substance: DICLOFENAC POTASSIUM
     Indication: Product used for unknown indication
     Dosage: UNK
     Route: 048
  154. DICLOFENAC POTASSIUM [Suspect]
     Active Substance: DICLOFENAC POTASSIUM
     Indication: Product used for unknown indication
     Dosage: UNK
     Route: 031
  155. DICLOFENAC SODIUM [Suspect]
     Active Substance: DICLOFENAC SODIUM
     Indication: Product used for unknown indication
     Dosage: 50.0 MILLIGRAM, 1 EVERY 1 DAYS (QD)
     Route: 058
  156. DICLOFENAC SODIUM [Suspect]
     Active Substance: DICLOFENAC SODIUM
     Dosage: 100.0 MILLIGRAM
     Route: 065
  157. DICLOFENAC SODIUM [Suspect]
     Active Substance: DICLOFENAC SODIUM
     Dosage: UNK
     Route: 065
  158. DICLOFENAC SODIUM [Suspect]
     Active Substance: DICLOFENAC SODIUM
     Dosage: UNK
     Route: 058
  159. DICLOFENAC SODIUM [Suspect]
     Active Substance: DICLOFENAC SODIUM
     Dosage: UNK
     Route: 065
  160. DICLOFENAC SODIUM [Suspect]
     Active Substance: DICLOFENAC SODIUM
     Dosage: UNK
     Route: 058
  161. DICLOFENAC SODIUM [Suspect]
     Active Substance: DICLOFENAC SODIUM
     Dosage: UNK
     Route: 031
  162. DICLOFENAC SODIUM [Suspect]
     Active Substance: DICLOFENAC SODIUM
     Dosage: UNK
     Route: 048
  163. DICLOFENAC SODIUM [Suspect]
     Active Substance: DICLOFENAC SODIUM
     Dosage: 50.0 MILLIGRAM, 1 EVERY 1 DAYS
     Route: 065
  164. DICLOFENAC SODIUM [Suspect]
     Active Substance: DICLOFENAC SODIUM
     Dosage: UNK
     Route: 058
  165. DICLOFENAC SODIUM [Suspect]
     Active Substance: DICLOFENAC SODIUM
     Dosage: 100.0 MILLIGRAM
     Route: 065
  166. DOXYCYCLINE HYCLATE [Suspect]
     Active Substance: DOXYCYCLINE HYCLATE
     Indication: Product used for unknown indication
     Dosage: 40.0 MILLIGRAM
     Route: 065
  167. ENBREL [Suspect]
     Active Substance: ETANERCEPT
     Indication: Rheumatoid arthritis
     Dosage: 20.0 MILLIGRAM
     Route: 058
  168. ENBREL [Suspect]
     Active Substance: ETANERCEPT
     Indication: Psoriatic arthropathy
     Dosage: 50.0 MILLIGRAM
     Route: 058
  169. ENBREL [Suspect]
     Active Substance: ETANERCEPT
     Dosage: 20.0 MILLIGRAM, 1 EVERY 1 WEEKS
     Route: 058
  170. ENBREL [Suspect]
     Active Substance: ETANERCEPT
     Dosage: 50.0 MILLIGRAM, 1 EVERY 1 WEEKS
     Route: 058
  171. ENBREL [Suspect]
     Active Substance: ETANERCEPT
     Dosage: 20.0 MILLIGRAM, 1 EVERY 1 DAYS
     Route: 058
  172. ENBREL [Suspect]
     Active Substance: ETANERCEPT
     Dosage: UNK
     Route: 058
  173. ENBREL [Suspect]
     Active Substance: ETANERCEPT
     Indication: Rheumatoid arthritis
     Dosage: 50.0 MILLIGRAM, 1 EVERY 1 WEEKS
     Route: 065
  174. ENBREL [Suspect]
     Active Substance: ETANERCEPT
     Indication: Psoriatic arthropathy
     Dosage: UNK
     Route: 065
  175. ERELZI [Suspect]
     Active Substance: ETANERCEPT-SZZS
     Indication: Rheumatoid arthritis
     Dosage: 50.0 MILLIGRAM, 1 EVERY 1 WEEKS
     Route: 058
  176. ERELZI [Suspect]
     Active Substance: ETANERCEPT-SZZS
     Indication: Rheumatoid arthritis
     Dosage: UNK (NOT SPECIFIED)
     Route: 065
  177. FLUMETHASONE PIVALATE [Suspect]
     Active Substance: FLUMETHASONE PIVALATE
     Indication: Rheumatoid arthritis
     Dosage: UNK
     Route: 058
  178. FLUMETHASONE PIVALATE\NEOMYCIN SULFATE [Suspect]
     Active Substance: FLUMETHASONE PIVALATE\NEOMYCIN SULFATE
     Indication: Rheumatoid arthritis
     Dosage: UNK
     Route: 065
  179. FOLIC ACID [Suspect]
     Active Substance: FOLIC ACID
     Indication: Rheumatoid arthritis
     Dosage: 1.0 MILLIGRAM
     Route: 058
  180. FOLIC ACID [Suspect]
     Active Substance: FOLIC ACID
     Dosage: 3.0 MILLIGRAM
     Route: 065
  181. FOLIC ACID [Suspect]
     Active Substance: FOLIC ACID
     Dosage: 5.0 MILLIGRAM
     Route: 065
  182. FOLIC ACID [Suspect]
     Active Substance: FOLIC ACID
     Dosage: 25.0 MILLIGRAM
     Route: 065
  183. FOLIC ACID [Suspect]
     Active Substance: FOLIC ACID
     Dosage: 25.0 MILLIGRAM
     Route: 048
  184. FOLIC ACID [Suspect]
     Active Substance: FOLIC ACID
     Dosage: 15.0 MILLIGRAM
     Route: 048
  185. FOLIC ACID [Suspect]
     Active Substance: FOLIC ACID
     Dosage: 1.0 MILLIGRAM
     Route: 058
  186. FOLIC ACID [Suspect]
     Active Substance: FOLIC ACID
     Dosage: 5.0 MILLIGRAM, ONE EVERY ONE DAYS (QD)
     Route: 048
  187. FOLIC ACID [Suspect]
     Active Substance: FOLIC ACID
     Dosage: 5.0 MILLIGRAM
     Route: 048
  188. FOLIC ACID [Suspect]
     Active Substance: FOLIC ACID
     Dosage: 1.0 MILLIGRAM
     Route: 048
  189. FOLIC ACID [Suspect]
     Active Substance: FOLIC ACID
     Dosage: 5.0 MILLIGRAM, ONE EVERY ONE DAYS (QD)
     Route: 065
  190. FOLIC ACID [Suspect]
     Active Substance: FOLIC ACID
     Dosage: 500.0 MILLIGRAM
     Route: 048
  191. FOLIC ACID [Suspect]
     Active Substance: FOLIC ACID
     Dosage: 1.0 MILLIGRAM, ONE EVERY ONE DAYS (QD)
     Route: 065
  192. FOLIC ACID [Suspect]
     Active Substance: FOLIC ACID
     Dosage: 1.0 MILLIGRAM, ONE EVERY ONE DAYS (QD)
     Route: 065
  193. FOLIC ACID [Suspect]
     Active Substance: FOLIC ACID
     Dosage: 1.0 MILLIGRAM
     Route: 065
  194. FOLIC ACID [Suspect]
     Active Substance: FOLIC ACID
     Dosage: UNK
     Route: 065
  195. FOLIC ACID [Suspect]
     Active Substance: FOLIC ACID
     Dosage: 15.0 MILLIGRAM
     Route: 048
  196. FOLIC ACID [Suspect]
     Active Substance: FOLIC ACID
     Dosage: 0.5 MILLIGRAM
     Route: 048
  197. FOLIC ACID [Suspect]
     Active Substance: FOLIC ACID
     Indication: Rheumatoid arthritis
     Dosage: 25.0 MILLIGRAM
     Route: 058
  198. GOLIMUMAB [Suspect]
     Active Substance: GOLIMUMAB
     Indication: Rheumatoid arthritis
     Dosage: UNK
     Route: 065
  199. GOLIMUMAB [Suspect]
     Active Substance: GOLIMUMAB
     Indication: Rheumatoid arthritis
     Dosage: UNK
     Route: 058
  200. HUMIRA [Suspect]
     Active Substance: ADALIMUMAB
     Indication: Rheumatoid arthritis
     Dosage: 40.0 MILLIGRAM
     Route: 058
  201. HUMIRA [Suspect]
     Active Substance: ADALIMUMAB
     Indication: Psoriatic arthropathy
     Dosage: UNK
     Route: 058
  202. HUMIRA [Suspect]
     Active Substance: ADALIMUMAB
     Dosage: UNK
     Route: 065
  203. HUMIRA [Suspect]
     Active Substance: ADALIMUMAB
     Dosage: UNK
     Route: 065
  204. HUMIRA [Suspect]
     Active Substance: ADALIMUMAB
     Dosage: 400.0 MILLIGRAM
     Route: 058
  205. HUMIRA [Suspect]
     Active Substance: ADALIMUMAB
     Dosage: 4.0 MILLIGRAM
     Route: 058
  206. HUMIRA [Suspect]
     Active Substance: ADALIMUMAB
     Indication: Rheumatoid arthritis
     Dosage: 400.0 MILLIGRAM
     Route: 058
  207. HUMIRA [Suspect]
     Active Substance: ADALIMUMAB
     Indication: Psoriatic arthropathy
  208. HYDROCORTISONE [Suspect]
     Active Substance: HYDROCORTISONE
     Indication: Rheumatoid arthritis
     Dosage: UNK
     Route: 065
  209. HYDROCORTISONE [Suspect]
     Active Substance: HYDROCORTISONE
     Dosage: 25.0 MILLIGRAM
     Route: 065
  210. HYDROCORTISONE [Suspect]
     Active Substance: HYDROCORTISONE
     Indication: Rheumatoid arthritis
     Dosage: UNK
     Route: 048
  211. HYDROCORTISONE [Suspect]
     Active Substance: HYDROCORTISONE
     Dosage: UNK
     Route: 048
  212. HYDROCORTISONE [Suspect]
     Active Substance: HYDROCORTISONE
     Indication: Rheumatoid arthritis
     Dosage: UNK
     Route: 058
  213. HYDROCORTISONE [Suspect]
     Active Substance: HYDROCORTISONE
     Dosage: UNK
     Route: 003
  214. HYDROCORTISONE [Suspect]
     Active Substance: HYDROCORTISONE
     Indication: Rheumatoid arthritis
     Dosage: 25.0 MILLIGRAM
     Route: 061
  215. HYDROCORTISONE BUTYRATE [Suspect]
     Active Substance: HYDROCORTISONE BUTYRATE
     Indication: Rheumatoid arthritis
     Dosage: UNK
     Route: 058
  216. HYDROCORTISONE PROBUTATE [Suspect]
     Active Substance: HYDROCORTISONE PROBUTATE
     Indication: Rheumatoid arthritis
     Dosage: UNK
     Route: 058
  217. HYDROCORTISONE SODIUM SUCCINATE [Suspect]
     Active Substance: HYDROCORTISONE SODIUM SUCCINATE
     Indication: Rheumatoid arthritis
     Dosage: UNK
     Route: 048
  218. HYDROCORTISONE SODIUM SUCCINATE [Suspect]
     Active Substance: HYDROCORTISONE SODIUM SUCCINATE
     Dosage: 25.0 MILLIGRAM
     Route: 048
  219. HYDROCORTISONE SODIUM SUCCINATE [Suspect]
     Active Substance: HYDROCORTISONE SODIUM SUCCINATE
     Indication: Rheumatoid arthritis
     Dosage: UNK
     Route: 065
  220. HYDROCORTISONE SODIUM SUCCINATE [Suspect]
     Active Substance: HYDROCORTISONE SODIUM SUCCINATE
     Dosage: 25.0 MILLIGRAM
     Route: 065
  221. HYDROXYCHLOROQUINE [Suspect]
     Active Substance: HYDROXYCHLOROQUINE
     Indication: Rheumatoid arthritis
     Dosage: 400.0 MILLIGRAM
     Route: 065
  222. HYDROXYCHLOROQUINE [Suspect]
     Active Substance: HYDROXYCHLOROQUINE
     Dosage: UNK
     Route: 065
  223. HYDROXYCHLOROQUINE [Suspect]
     Active Substance: HYDROXYCHLOROQUINE
     Dosage: UNK
     Route: 048
  224. HYDROXYCHLOROQUINE [Suspect]
     Active Substance: HYDROXYCHLOROQUINE
     Dosage: 400.0 MILLIGRAM
     Route: 048
  225. HYDROXYCHLOROQUINE [Suspect]
     Active Substance: HYDROXYCHLOROQUINE
     Dosage: 40.0 MILLIGRAM, ONE EVERY ONE DAYS (QD)
     Route: 065
  226. HYDROXYCHLOROQUINE [Suspect]
     Active Substance: HYDROXYCHLOROQUINE
     Dosage: 400.0 MILLIGRAM, ONE EVERY ONE DAYS (QD)
     Route: 065
  227. HYDROXYCHLOROQUINE [Suspect]
     Active Substance: HYDROXYCHLOROQUINE
     Dosage: 400.0 MILLIGRAM, ONE EVERY ONE DAYS (QD)
     Route: 065
  228. HYDROXYCHLOROQUINE [Suspect]
     Active Substance: HYDROXYCHLOROQUINE
     Dosage: 40.0 MILLIGRAM, ONE EVERY ONE DAYS (QD)
     Route: 065
  229. HYDROXYCHLOROQUINE [Suspect]
     Active Substance: HYDROXYCHLOROQUINE
     Dosage: 400.0 MILLIGRAM, ONE EVERY ONE DAYS (QD)
     Route: 065
  230. HYDROXYCHLOROQUINE [Suspect]
     Active Substance: HYDROXYCHLOROQUINE
     Dosage: 400.0 MILLIGRAM, ONE EVERY ONE DAYS (QD)
     Route: 048
  231. HYDROXYCHLOROQUINE SULFATE [Suspect]
     Active Substance: HYDROXYCHLOROQUINE SULFATE
     Indication: Systemic lupus erythematosus
     Dosage: 40.0 MILLIGRAM, ONE EVERY ONE DAYS (QD)
     Route: 065
  232. HYDROXYCHLOROQUINE SULFATE [Suspect]
     Active Substance: HYDROXYCHLOROQUINE SULFATE
     Indication: Rheumatoid arthritis
     Dosage: 5.0 MILLIGRAM
     Route: 048
  233. HYDROXYCHLOROQUINE SULFATE [Suspect]
     Active Substance: HYDROXYCHLOROQUINE SULFATE
     Dosage: 400.0 MILLIGRAM, ONE EVERY ONE DAYS (QD)
     Route: 058
  234. HYDROXYCHLOROQUINE SULFATE [Suspect]
     Active Substance: HYDROXYCHLOROQUINE SULFATE
     Dosage: 400.0 MILLIGRAM, ONE EVERY ONE DAYS (QD)
     Route: 048
  235. HYDROXYCHLOROQUINE SULFATE [Suspect]
     Active Substance: HYDROXYCHLOROQUINE SULFATE
     Dosage: UNK
     Route: 048
  236. HYDROXYCHLOROQUINE SULFATE [Suspect]
     Active Substance: HYDROXYCHLOROQUINE SULFATE
     Dosage: 400.0 MILLIGRAM
     Route: 048
  237. HYDROXYCHLOROQUINE SULFATE [Suspect]
     Active Substance: HYDROXYCHLOROQUINE SULFATE
     Dosage: 400.0 MILLIGRAM, ONE EVERY ONE DAYS (QD)
     Route: 065
  238. HYDROXYCHLOROQUINE SULFATE [Suspect]
     Active Substance: HYDROXYCHLOROQUINE SULFATE
     Dosage: 400.0 MILLIGRAM
     Route: 065
  239. HYDROXYCHLOROQUINE SULFATE [Suspect]
     Active Substance: HYDROXYCHLOROQUINE SULFATE
     Dosage: 400.0 MILLIGRAM, ONE EVERY ONE DAYS (QD)
     Route: 065
  240. HYDROXYCHLOROQUINE SULFATE [Suspect]
     Active Substance: HYDROXYCHLOROQUINE SULFATE
     Dosage: 400.0 MILLIGRAM, ONE EVERY ONE DAYS (QD)
     Route: 048
  241. HYDROXYCHLOROQUINE SULFATE [Suspect]
     Active Substance: HYDROXYCHLOROQUINE SULFATE
     Dosage: UNK
     Route: 065
  242. HYDROXYCHLOROQUINE SULFATE [Suspect]
     Active Substance: HYDROXYCHLOROQUINE SULFATE
     Dosage: 400.0 MILLIGRAM
     Route: 048
  243. HYDROXYCHLOROQUINE SULFATE [Suspect]
     Active Substance: HYDROXYCHLOROQUINE SULFATE
     Dosage: 400.0 MILLIGRAM, ONE EVERY ONE DAYS (QD)
     Route: 065
  244. HYDROXYCHLOROQUINE SULFATE [Suspect]
     Active Substance: HYDROXYCHLOROQUINE SULFATE
     Dosage: 400.0 MILLIGRAM
     Route: 048
  245. HYDROXYCHLOROQUINE SULFATE [Suspect]
     Active Substance: HYDROXYCHLOROQUINE SULFATE
     Dosage: 400.0 MILLIGRAM, ONE EVERY ONE DAYS (QD)
     Route: 048
  246. HYDROXYCHLOROQUINE SULFATE [Suspect]
     Active Substance: HYDROXYCHLOROQUINE SULFATE
     Dosage: UNK
     Route: 048
  247. HYDROXYCHLOROQUINE SULFATE [Suspect]
     Active Substance: HYDROXYCHLOROQUINE SULFATE
     Dosage: 400.0 MILLIGRAM
     Route: 065
  248. HYDROXYCHLOROQUINE SULFATE [Suspect]
     Active Substance: HYDROXYCHLOROQUINE SULFATE
     Dosage: 40.0 MILLIGRAM, ONE EVERY ONE DAYS (QD)
     Route: 065
  249. HYDROXYCHLOROQUINE SULFATE [Suspect]
     Active Substance: HYDROXYCHLOROQUINE SULFATE
     Dosage: UNK
     Route: 065
  250. HYDROXYCHLOROQUINE SULFATE [Suspect]
     Active Substance: HYDROXYCHLOROQUINE SULFATE
     Dosage: 400.0 MILLIGRAM, ONE EVERY ONE DAYS (QD)
     Route: 065
  251. HYDROXYCHLOROQUINE SULFATE [Suspect]
     Active Substance: HYDROXYCHLOROQUINE SULFATE
     Dosage: 4000.0 MILLIGRAM, ONE EVERY ONE DAYS (QD)
     Route: 058
  252. INFLIXIMAB [Suspect]
     Active Substance: INFLIXIMAB
     Indication: Rheumatoid arthritis
     Dosage: UNK (NOT OTHERWISE SPECIFIED)
     Route: 042
  253. INFLIXIMAB [Suspect]
     Active Substance: INFLIXIMAB
     Dosage: 400.0 MILLIGRAM
     Route: 065
  254. INFLIXIMAB [Suspect]
     Active Substance: INFLIXIMAB
     Indication: Rheumatoid arthritis
     Dosage: 500.0 MILLIGRAM, (NOT SPECIFIED)
     Route: 042
  255. INFLIXIMAB [Suspect]
     Active Substance: INFLIXIMAB
     Indication: Rheumatoid arthritis
     Dosage: UNK
     Route: 065
  256. INFLIXIMAB [Suspect]
     Active Substance: INFLIXIMAB
     Dosage: UNK (NOT OTHERWISE SPECIFIED)
     Route: 042
  257. INFLIXIMAB [Suspect]
     Active Substance: INFLIXIMAB
     Dosage: 50.0 MILLIGRAM
     Route: 042
  258. INFLIXIMAB [Suspect]
     Active Substance: INFLIXIMAB
     Indication: Rheumatoid arthritis
     Dosage: 500.0 MILLIGRAM
     Route: 065
  259. ISOPROPYL ALCOHOL [Suspect]
     Active Substance: ISOPROPYL ALCOHOL
     Indication: Product used for unknown indication
     Dosage: LIQUID TOPICAL
     Route: 061
  260. LEFLUNOMIDE [Suspect]
     Active Substance: LEFLUNOMIDE
     Indication: Rheumatoid arthritis
     Dosage: 20.0 MILLIGRAM
     Route: 048
  261. LEFLUNOMIDE [Suspect]
     Active Substance: LEFLUNOMIDE
     Indication: Rheumatoid arthritis
     Dosage: UNK
     Route: 048
  262. LEFLUNOMIDE [Suspect]
     Active Substance: LEFLUNOMIDE
     Dosage: UNK
     Route: 065
  263. METHOTREXATE [Suspect]
     Active Substance: METHOTREXATE
     Indication: Rheumatoid arthritis
     Dosage: UNK (NOT SPECIFIED)
  264. METHOTREXATE [Suspect]
     Active Substance: METHOTREXATE
     Indication: Rheumatoid arthritis
     Dosage: 25.0 MILLIGRAM
     Route: 048
  265. METHOTREXATE [Suspect]
     Active Substance: METHOTREXATE
     Dosage: 225.0 MILLIGRAM
     Route: 048
  266. METHOTREXATE [Suspect]
     Active Substance: METHOTREXATE
     Dosage: 25.0 MILLIGRAM, ONE EVERY ONE WEEKS (QW)
     Route: 058
  267. METHOTREXATE [Suspect]
     Active Substance: METHOTREXATE
     Dosage: 20.0 MILLIGRAM
     Route: 013
  268. METHOTREXATE [Suspect]
     Active Substance: METHOTREXATE
     Dosage: 25.0 MILLIGRAM
     Route: 048
  269. METHOTREXATE [Suspect]
     Active Substance: METHOTREXATE
     Dosage: UNK
     Route: 013
  270. METHOTREXATE [Suspect]
     Active Substance: METHOTREXATE
     Dosage: 25.0 MILLIGRAM
     Route: 065
  271. METHOTREXATE [Suspect]
     Active Substance: METHOTREXATE
     Dosage: 15.0 MILLIGRAM
     Route: 048
  272. METHOTREXATE [Suspect]
     Active Substance: METHOTREXATE
     Dosage: 2.0 DOSAGE FORM, 1 EVERY 1 DAYS (QD)
     Route: 048
  273. METHOTREXATE [Suspect]
     Active Substance: METHOTREXATE
     Dosage: 15.0 MILLIGRAM
     Route: 048
  274. METHOTREXATE [Suspect]
     Active Substance: METHOTREXATE
     Dosage: 500.0 MILLIGRAM
     Route: 065
  275. METHOTREXATE [Suspect]
     Active Substance: METHOTREXATE
     Dosage: 25.0 MILLIGRAM, 1 EVERY 1 DAYS (QD)
     Route: 048
  276. METHOTREXATE [Suspect]
     Active Substance: METHOTREXATE
     Dosage: 25.0 MILLIGRAM
     Route: 048
  277. METHOTREXATE [Suspect]
     Active Substance: METHOTREXATE
     Dosage: 1.0 DOSAGE FORM
     Route: 048
  278. METHOTREXATE [Suspect]
     Active Substance: METHOTREXATE
     Dosage: 20.0 MILLIGRAM, 1 EVERY 1 DAYS (QD)
     Route: 048
  279. METHOTREXATE [Suspect]
     Active Substance: METHOTREXATE
     Dosage: 25.0 MILLIGRAM, 1 EVERY 1 DAYS (QD)
     Route: 048
  280. METHOTREXATE [Suspect]
     Active Substance: METHOTREXATE
     Dosage: 15.0 MILLIGRAM, 1 EVERY 1 DAYS (QD)
     Route: 048
  281. METHOTREXATE [Suspect]
     Active Substance: METHOTREXATE
     Dosage: 25.0 MILLIGRAM, 1 EVERY 1 DAYS (QD)
     Route: 058
  282. METHOTREXATE [Suspect]
     Active Substance: METHOTREXATE
     Dosage: 20.0 MILLIGRAM, 1 EVERY 1 DAYS (QD)
     Route: 065
  283. METHOTREXATE [Suspect]
     Active Substance: METHOTREXATE
     Dosage: 20.0 MILLIGRAM, 1 EVERY 1 WEEKS (QW)
     Route: 058
  284. METHOTREXATE [Suspect]
     Active Substance: METHOTREXATE
     Dosage: 25.0 MILLIGRAM, 1 EVERY 1 DAYS (QD)
     Route: 013
  285. METHOTREXATE [Suspect]
     Active Substance: METHOTREXATE
     Dosage: 25.0 MILLIGRAM, ONE EVERY ONE WEEKS (QW)
     Route: 037
  286. METHOTREXATE [Suspect]
     Active Substance: METHOTREXATE
     Dosage: 500.0 MILLIGRAM, 1 EVERY 0.5 DAYS
     Route: 065
  287. METHOTREXATE [Suspect]
     Active Substance: METHOTREXATE
     Dosage: 20.0 MILLIGRAM
     Route: 065
  288. METHOTREXATE [Suspect]
     Active Substance: METHOTREXATE
     Dosage: 2.0 GRAM, 1 EVERY 1 DAYS (QD)
     Route: 048
  289. METHOTREXATE [Suspect]
     Active Substance: METHOTREXATE
     Dosage: 1.0 DOSAGE FORM
     Route: 048
  290. METHOTREXATE [Suspect]
     Active Substance: METHOTREXATE
     Dosage: UNK
     Route: 013
  291. METHOTREXATE [Suspect]
     Active Substance: METHOTREXATE
     Dosage: 20.0 MILLIGRAM, 1 EVERY 1 WEEKS (QW)
     Route: 058
  292. METHOTREXATE [Suspect]
     Active Substance: METHOTREXATE
     Dosage: 500.0 MILLIGRAM, 1 EVERY 0.5 DAYS
     Route: 065
  293. METHOTREXATE [Suspect]
     Active Substance: METHOTREXATE
     Dosage: 20.0 MILLIGRAM, 1 EVERY 1 DAYS (QD)
     Route: 048
  294. METHOTREXATE [Suspect]
     Active Substance: METHOTREXATE
     Dosage: 25.0 MILLIGRAM
     Route: 065
  295. METHOTREXATE [Suspect]
     Active Substance: METHOTREXATE
     Dosage: 20.0 MILLIGRAM, 1 EVERY 1 WEEKS (QW)
     Route: 058
  296. METHOTREXATE [Suspect]
     Active Substance: METHOTREXATE
     Dosage: 25.0 MILLIGRAM, ONE EVERY ONE WEEKS (QW)
     Route: 058
  297. METHOTREXATE [Suspect]
     Active Substance: METHOTREXATE
     Dosage: 25.0 MILLIGRAM
     Route: 058
  298. METHOTREXATE [Suspect]
     Active Substance: METHOTREXATE
     Dosage: 2.0 GRAM
     Route: 048
  299. METHOTREXATE [Suspect]
     Active Substance: METHOTREXATE
     Dosage: 2.0 GRAM, 1 EVERY 1 DAYS (QD)
     Route: 048
  300. METHOTREXATE [Suspect]
     Active Substance: METHOTREXATE
     Dosage: 20.0 MILLIGRAM, 1 EVERY 1 DAYS (QD)
     Route: 048
  301. METHOTREXATE [Suspect]
     Active Substance: METHOTREXATE
     Dosage: 225.0 MILLIGRAM
     Route: 048
  302. METHOTREXATE [Suspect]
     Active Substance: METHOTREXATE
     Dosage: 225.0 MILLIGRAM
     Route: 048
  303. METHOTREXATE [Suspect]
     Active Substance: METHOTREXATE
     Dosage: 25.0 MILLIGRAM
     Route: 065
  304. METHOTREXATE [Suspect]
     Active Substance: METHOTREXATE
     Dosage: 25.0 MILLIGRAM, 1 EVERY 1 DAYS (QD)
     Route: 048
  305. METHOTREXATE [Suspect]
     Active Substance: METHOTREXATE
     Dosage: 25.0 MILLIGRAM, 1 EVERY 1 DAYS (QD)
     Route: 048
  306. METHOTREXATE [Suspect]
     Active Substance: METHOTREXATE
     Dosage: 25.0 MILLIGRAM
     Route: 058
  307. METHOTREXATE [Suspect]
     Active Substance: METHOTREXATE
     Dosage: 20.0 MILLIGRAM, 1 EVERY 1 DAYS (QD)
     Route: 048
  308. METHOTREXATE [Suspect]
     Active Substance: METHOTREXATE
     Dosage: 20.0 MILLIGRAM, 1 EVERY 1 DAYS (QD)
     Route: 048
  309. METHOTREXATE [Suspect]
     Active Substance: METHOTREXATE
     Dosage: 1.0 DOSAGE FORM
     Route: 048
  310. METHOTREXATE [Suspect]
     Active Substance: METHOTREXATE
     Dosage: 500.0 MILLIGRAM, 1 EVERY 2 DAYS (QOD)
     Route: 065
  311. METHOTREXATE [Suspect]
     Active Substance: METHOTREXATE
     Dosage: UNK
     Route: 013
  312. METHOTREXATE [Suspect]
     Active Substance: METHOTREXATE
     Dosage: 20.0 MILLIGRAM, 1 EVERY 1 DAYS (QD)
     Route: 048
  313. MYCOPHENOLATE MOFETIL HYDROCHLORIDE [Suspect]
     Active Substance: MYCOPHENOLATE MOFETIL HYDROCHLORIDE
     Indication: Rheumatoid arthritis
     Dosage: UNK
     Route: 065
  314. NAPROXEN SODIUM [Suspect]
     Active Substance: NAPROXEN SODIUM
     Indication: Rheumatoid arthritis
     Dosage: 500.0 MILLIGRAM, 1 EVERY 0.5 DAYS
     Route: 065
  315. NAPROXEN SODIUM [Suspect]
     Active Substance: NAPROXEN SODIUM
     Indication: Rheumatoid arthritis
     Dosage: 500.0 MILLIGRAM
     Route: 065
  316. NEOMYCIN SULFATE [Suspect]
     Active Substance: NEOMYCIN SULFATE
     Indication: Product used for unknown indication
     Dosage: UNK
     Route: 065
  317. ORENCIA [Suspect]
     Active Substance: ABATACEPT
     Indication: Rheumatoid arthritis
     Dosage: UNK
     Route: 065
  318. ORENCIA [Suspect]
     Active Substance: ABATACEPT
     Indication: Rheumatoid arthritis
     Dosage: UNK
     Route: 058
  319. ORENCIA [Suspect]
     Active Substance: ABATACEPT
     Dosage: 125.0 MILLIGRAM
     Route: 058
  320. ORENCIA [Suspect]
     Active Substance: ABATACEPT
     Dosage: UNK (NOT OTHERWISE SPECIFIED)
     Route: 042
  321. ORENCIA [Suspect]
     Active Substance: ABATACEPT
     Dosage: 5.0 MILLIGRAM
     Route: 065
  322. ORENCIA [Suspect]
     Active Substance: ABATACEPT
     Dosage: 125.0 MILLIGRAM
     Route: 058
  323. ORENCIA [Suspect]
     Active Substance: ABATACEPT
     Dosage: UNK
     Route: 042
  324. ORENCIA [Suspect]
     Active Substance: ABATACEPT
     Dosage: UNK
     Route: 058
  325. OXYCODONE [Suspect]
     Active Substance: OXYCODONE
     Indication: Product used for unknown indication
     Dosage: UNK
     Route: 065
  326. OXYCODONE HYDROCHLORIDE [Suspect]
     Active Substance: OXYCODONE HYDROCHLORIDE
     Indication: Product used for unknown indication
     Dosage: UNK
     Route: 065
  327. OXYCODONE TEREPHTHALATE [Suspect]
     Active Substance: OXYCODONE TEREPHTHALATE
     Indication: Product used for unknown indication
     Dosage: UNK
     Route: 016
  328. OXYCODONE TEREPHTHALATE [Suspect]
     Active Substance: OXYCODONE TEREPHTHALATE
     Indication: Product used for unknown indication
     Dosage: UNK
     Route: 065
  329. PANTOPRAZOLE SODIUM [Suspect]
     Active Substance: PANTOPRAZOLE SODIUM
     Indication: Product used for unknown indication
     Dosage: UNK
     Route: 065
  330. PERIOGARD [Suspect]
     Active Substance: CHLORHEXIDINE GLUCONATE
     Indication: Product used for unknown indication
     Dosage: UNK
     Route: 002
  331. PERIOGARD [Suspect]
     Active Substance: CHLORHEXIDINE GLUCONATE
     Indication: Product used for unknown indication
     Dosage: UNK
     Route: 048
  332. PERIOGARD [Suspect]
     Active Substance: CHLORHEXIDINE GLUCONATE
     Indication: Product used for unknown indication
     Dosage: UNK
     Route: 016
  333. PERIOGARD [Suspect]
     Active Substance: CHLORHEXIDINE GLUCONATE
     Indication: Product used for unknown indication
     Dosage: UNK
     Route: 065
  334. PHTHALYLSULFATHIAZOLE [Suspect]
     Active Substance: PHTHALYLSULFATHIAZOLE
     Indication: Rheumatoid arthritis
     Dosage: 500.0 MILLIGRAM
     Route: 048
  335. PHTHALYLSULFATHIAZOLE [Suspect]
     Active Substance: PHTHALYLSULFATHIAZOLE
     Dosage: 1000.0 MILLIGRAM
     Route: 048
  336. PHTHALYLSULFATHIAZOLE [Suspect]
     Active Substance: PHTHALYLSULFATHIAZOLE
     Dosage: 2000.0 MILLIGRAM, 1 EVERY 0.5 DAYS
     Route: 048
  337. PHTHALYLSULFATHIAZOLE [Suspect]
     Active Substance: PHTHALYLSULFATHIAZOLE
     Dosage: 2000.0 MILLIGRAM
     Route: 048
  338. PHTHALYLSULFATHIAZOLE [Suspect]
     Active Substance: PHTHALYLSULFATHIAZOLE
     Dosage: 1000.0 MILLIGRAM, 1 EVERY 0.5 DAYS
     Route: 048
  339. PHTHALYLSULFATHIAZOLE [Suspect]
     Active Substance: PHTHALYLSULFATHIAZOLE
     Dosage: UNK
     Route: 048

REACTIONS (12)
  - Sleep disorder due to general medical condition, insomnia type [Fatal]
  - Urticaria [Fatal]
  - Vomiting [Fatal]
  - Weight increased [Fatal]
  - Wheezing [Fatal]
  - Wound [Fatal]
  - Drug ineffective [Fatal]
  - Therapy non-responder [Fatal]
  - Treatment failure [Fatal]
  - Medication error [Fatal]
  - Off label use [Fatal]
  - Product use in unapproved indication [Fatal]
